FAERS Safety Report 11696513 (Version 2)
Quarter: 2015Q4

REPORT INFORMATION
  Report Type: Spontaneous
  Country: US (occurrence: US)
  Receive Date: 20151104
  Receipt Date: 20151112
  Transmission Date: 20160304
  Serious: No
  Sender: FDA-Public Use
  Company Number: US-MISSION PHARMACAL COMPANY-1043727

PATIENT
  Age: 65 Year
  Sex: Female

DRUGS (1)
  1. THIOLA [Suspect]
     Active Substance: TIOPRONIN
     Indication: NEPHROLITHIASIS
     Route: 048
     Dates: start: 20141202, end: 20150924

REACTIONS (5)
  - Irritability [Unknown]
  - Pain [Unknown]
  - Nephrolithiasis [Not Recovered/Not Resolved]
  - Depressed mood [Unknown]
  - Fatigue [Unknown]
